FAERS Safety Report 21304399 (Version 1)
Quarter: 2022Q3

REPORT INFORMATION
  Report Type: Spontaneous
  Country: US (occurrence: None)
  Receive Date: 20220907
  Receipt Date: 20220907
  Transmission Date: 20221027
  Serious: No
  Sender: FDA-Public Use
  Company Number: US-ARIS GLOBAL-202108-1323

PATIENT
  Sex: Female

DRUGS (9)
  1. OXERVATE [Suspect]
     Active Substance: CENEGERMIN-BKBJ
     Indication: Neurotrophic keratopathy
     Route: 047
     Dates: start: 20210726
  2. OXERVATE [Suspect]
     Active Substance: CENEGERMIN-BKBJ
     Indication: Ulcerative keratitis
  3. ALPRAZOLAM [Concomitant]
     Active Substance: ALPRAZOLAM
  4. GABAPENTIN [Concomitant]
     Active Substance: GABAPENTIN
  5. VALACYCLOVIR [Concomitant]
     Active Substance: VALACYCLOVIR HYDROCHLORIDE
  6. BACITRACIN [Concomitant]
     Active Substance: BACITRACIN
     Dosage: VIAL
  7. CEFTAZIDIME [Concomitant]
     Active Substance: CEFTAZIDIME
     Dosage: VIAL
  8. VANCOMYCIN HYDROCHLORIDE [Concomitant]
     Active Substance: VANCOMYCIN HYDROCHLORIDE
     Dosage: VIAL
  9. FLUOROMETHOLONE [Concomitant]
     Active Substance: FLUOROMETHOLONE

REACTIONS (2)
  - Periorbital pain [Unknown]
  - Eye irritation [Unknown]
